FAERS Safety Report 20549910 (Version 1)
Quarter: 2022Q1

REPORT INFORMATION
  Report Type: Spontaneous
  Country: US (occurrence: US)
  Receive Date: 20220304
  Receipt Date: 20220304
  Transmission Date: 20220423
  Serious: Yes (Other)
  Sender: FDA-Public Use
  Company Number: US-PURDUE-USA-2020-0283840

PATIENT

DRUGS (1)
  1. BUPRENORPHINE [Suspect]
     Active Substance: BUPRENORPHINE
     Indication: Product used for unknown indication
     Dosage: UNKNOWN
     Route: 065
     Dates: start: 200403

REACTIONS (11)
  - Drug dependence [Unknown]
  - Dental caries [Unknown]
  - Sensory disturbance [Unknown]
  - Varicose vein [Unknown]
  - Poor peripheral circulation [Unknown]
  - Areflexia [Unknown]
  - Constipation [Unknown]
  - Insomnia [Unknown]
  - Dry mouth [Unknown]
  - Hypoaesthesia [Unknown]
  - Drug withdrawal syndrome [Unknown]
